FAERS Safety Report 6374493-7 (Version None)
Quarter: 2009Q3

REPORT INFORMATION
  Report Type: 
  Country: None (occurrence: None)
  Receive Date: 20090924
  Receipt Date: 20090720
  Transmission Date: 20100115
  Serious: No
  Sender: FDA-Public Use
  Company Number: US-ASTRAZENECA-2009UW20389

PATIENT
  Age: 589 Month
  Sex: Male
  Weight: 77.1 kg

DRUGS (2)
  1. SEROQUEL XR [Suspect]
     Route: 048
  2. SEROQUEL [Concomitant]

REACTIONS (1)
  - OROPHARYNGEAL PAIN [None]
